FAERS Safety Report 7461642-2 (Version None)
Quarter: 2011Q2

REPORT INFORMATION
  Report Type: 
  Country: None (occurrence: None)
  Receive Date: 20110506
  Receipt Date: 20110503
  Transmission Date: 20111010
  Serious: Yes (Death)
  Sender: FDA-Public Use
  Company Number: US-AMGEN-USASP2011023112

PATIENT
  Age: 72 Year
  Sex: Female

DRUGS (4)
  1. NPLATE [Suspect]
     Indication: IDIOPATHIC THROMBOCYTOPENIC PURPURA
     Dates: start: 20091211
  2. IMMUNOGLOBULINS [Concomitant]
     Dosage: UNK
     Dates: start: 20091205
  3. TACROLIMUS [Concomitant]
     Dosage: UNK
     Dates: start: 20091202
  4. CORTICOSTEROIDS [Concomitant]
     Dosage: UNK
     Dates: start: 20091210

REACTIONS (1)
  - DEATH [None]
